FAERS Safety Report 20747676 (Version 4)
Quarter: 2024Q3

REPORT INFORMATION
  Report Type: Spontaneous
  Country: US (occurrence: US)
  Receive Date: 20220425
  Receipt Date: 20240731
  Transmission Date: 20241016
  Serious: No
  Sender: SANOFI AVENTIS
  Company Number: US-SA-SAC20220421001391

PATIENT
  Age: 76 Year
  Sex: Female

DRUGS (3)
  1. DUPIXENT [Suspect]
     Active Substance: DUPILUMAB
     Indication: Dermatitis atopic
     Dosage: 1 DF, 1X
     Route: 058
     Dates: start: 20220330, end: 20220330
  2. DUPIXENT [Suspect]
     Active Substance: DUPILUMAB
     Dosage: 300 MG, QOW
     Route: 058
     Dates: start: 2022
  3. KISQALI [Concomitant]
     Active Substance: RIBOCICLIB
     Dosage: 600MG/DY

REACTIONS (10)
  - Diarrhoea [Unknown]
  - Diarrhoea [Unknown]
  - Stomatitis [Unknown]
  - Dysphagia [Unknown]
  - Fatigue [Unknown]
  - Constipation [Unknown]
  - Dyschezia [Unknown]
  - Pain [Unknown]
  - Discomfort [Unknown]
  - Arthralgia [Unknown]
